FAERS Safety Report 5099555-6 (Version None)
Quarter: 2006Q4

REPORT INFORMATION
  Report Type: 
  Country: None (occurrence: None)
  Receive Date: 20060906
  Receipt Date: 20060824
  Transmission Date: 20070319
  Serious: Yes (Disabling)
  Sender: FDA-Public Use
  Company Number: 2006071293

PATIENT
  Age: 62 Year
  Sex: Male
  Weight: 99.7913 kg

DRUGS (4)
  1. LIPITOR [Suspect]
     Indication: DRUG USE FOR UNKNOWN INDICATION
     Dosage: 20 MG (20  MG, 1 IN 1 D), ORAL
     Route: 048
  2. LISINOPRIL [Concomitant]
  3. DIGOXIN [Concomitant]
  4. ASPIRIN [Concomitant]

REACTIONS (6)
  - BACK PAIN [None]
  - GAIT DISTURBANCE [None]
  - INSOMNIA [None]
  - MUSCLE DISORDER [None]
  - MUSCULAR WEAKNESS [None]
  - PAIN IN EXTREMITY [None]
